FAERS Safety Report 4647229-5 (Version None)
Quarter: 2005Q2

REPORT INFORMATION
  Report Type: 
  Country: None (occurrence: None)
  Receive Date: 20050426
  Receipt Date: 20050413
  Transmission Date: 20051028
  Serious: Yes (Hospitalization, Other)
  Sender: FDA-Public Use
  Company Number: 2005047087

PATIENT
  Age: 34 Year
  Sex: Female
  Weight: 40 kg

DRUGS (1)
  1. SULFASALAZINE [Suspect]
     Indication: COLITIS ULCERATIVE
     Dosage: ORAL
     Route: 048
     Dates: start: 20040918, end: 20040927

REACTIONS (2)
  - DRUG HYPERSENSITIVITY [None]
  - PYREXIA [None]
